FAERS Safety Report 12916387 (Version 4)
Quarter: 2017Q3

REPORT INFORMATION
  Report Type: Spontaneous
  Country: DE (occurrence: DE)
  Receive Date: 20161107
  Receipt Date: 20170726
  Transmission Date: 20171127
  Serious: Yes (Life-Threatening, Hospitalization, Other)
  Sender: FDA-Public Use
  Company Number: DE-B.I. PHARMACEUTICALS,INC./RIDGEFIELD-2016-BI-074589

PATIENT
  Age: 87 Year
  Sex: Male
  Weight: 80 kg

DRUGS (7)
  1. RAMIPRIL. [Concomitant]
     Active Substance: RAMIPRIL
     Indication: HYPERTENSION
     Route: 048
  2. TORASEMID [Concomitant]
     Active Substance: TORSEMIDE
     Indication: HYPERTENSION
     Route: 048
  3. NEBIVOLOL. [Concomitant]
     Active Substance: NEBIVOLOL
     Indication: HYPERTENSION
     Route: 048
  4. L-THYROXIN [Concomitant]
     Active Substance: LEVOTHYROXINE SODIUM
     Indication: HYPOTHYROIDISM
     Route: 048
  5. PRADAXA [Suspect]
     Active Substance: DABIGATRAN ETEXILATE MESYLATE
     Indication: ATRIAL FLUTTER
     Route: 048
     Dates: end: 20161101
  6. TILIDIN [Concomitant]
     Active Substance: NALOXONE HYDROCHLORIDE\TILIDINE HYDROCHLORIDE
     Indication: PRODUCT USED FOR UNKNOWN INDICATION
     Dosage: STRENGTH: 50 MG/4 MG
     Route: 048
  7. RISPERIDON [Concomitant]
     Active Substance: RISPERIDONE
     Indication: DEMENTIA
     Route: 048

REACTIONS (8)
  - Cerebral haemorrhage [Recovered/Resolved with Sequelae]
  - Intracranial haematoma [Unknown]
  - Fall [Unknown]
  - Hemiplegia [Unknown]
  - Aphasia [Unknown]
  - Spinal fracture [Unknown]
  - Craniocerebral injury [Recovered/Resolved with Sequelae]
  - Dysphagia [Unknown]

NARRATIVE: CASE EVENT DATE: 20161101
